FAERS Safety Report 10031454 (Version 2)
Quarter: 2014Q2

REPORT INFORMATION
  Report Type: Report from Study
  Country: JP (occurrence: JP)
  Receive Date: 20140324
  Receipt Date: 20140613
  Transmission Date: 20141212
  Serious: Yes (Hospitalization)
  Sender: FDA-Public Use
  Company Number: JP-AMGEN-JPNCT2013092425

PATIENT
  Age: 78 Year
  Sex: Male

DRUGS (7)
  1. DARBEPOETIN ALFA [Suspect]
     Indication: PRODUCT USED FOR UNKNOWN INDICATION
     Dosage: 15 MUG, Q4WK
     Route: 058
     Dates: start: 20110927
  2. ZYLORIC [Concomitant]
     Dosage: UNK
     Route: 065
  3. CONIEL [Concomitant]
     Dosage: UNK
     Route: 065
  4. LASIX                              /00032601/ [Concomitant]
     Dosage: UNK
     Route: 048
  5. MYSLEE [Concomitant]
     Dosage: UNK
     Route: 065
  6. ARGAMATE [Concomitant]
     Dosage: UNK
     Route: 065
  7. FERROMIA [Concomitant]
     Dosage: UNK
     Route: 048

REACTIONS (6)
  - Cataract operation [Recovered/Resolved]
  - Cataract operation [Recovered/Resolved]
  - Cardiac failure [Recovering/Resolving]
  - Iron deficiency anaemia [Recovering/Resolving]
  - Hyperphosphataemia [Not Recovered/Not Resolved]
  - Hyperparathyroidism secondary [Not Recovered/Not Resolved]
